FAERS Safety Report 20674305 (Version 1)
Quarter: 2022Q2

REPORT INFORMATION
  Report Type: Spontaneous
  Country: CN (occurrence: CN)
  Receive Date: 20220405
  Receipt Date: 20220405
  Transmission Date: 20220721
  Serious: Yes (Other)
  Sender: FDA-Public Use
  Company Number: CN-PFIZER INC-202200468948

PATIENT
  Age: 23 Year
  Sex: Female
  Weight: 94 kg

DRUGS (1)
  1. CARBOPROST TROMETHAMINE [Suspect]
     Active Substance: CARBOPROST TROMETHAMINE
     Indication: Uterine hypotonus
     Dosage: 250 UG, 1X/DAY
     Route: 030
     Dates: start: 20220308, end: 20220308

REACTIONS (6)
  - Abdominal pain [Recovering/Resolving]
  - Nausea [Recovering/Resolving]
  - Abdominal pain upper [Recovering/Resolving]
  - Retching [Recovering/Resolving]
  - Pain [Recovering/Resolving]
  - Labour pain [Recovering/Resolving]

NARRATIVE: CASE EVENT DATE: 20220308
